FAERS Safety Report 9548782 (Version 1)
Quarter: 2013Q3

REPORT INFORMATION
  Report Type: Spontaneous
  Country: US (occurrence: None)
  Receive Date: 20130923
  Receipt Date: 20130923
  Transmission Date: 20140515
  Serious: Yes (Hospitalization)
  Sender: FDA-Public Use
  Company Number: None

PATIENT
  Age: 41 Year
  Sex: Female
  Weight: 61.24 kg

DRUGS (1)
  1. BUPROPION [Suspect]
     Indication: DEPRESSION
     Route: 048
     Dates: start: 20130905, end: 20130916

REACTIONS (6)
  - Urticaria [None]
  - Skin burning sensation [None]
  - Swelling [None]
  - Pyrexia [None]
  - Hypotension [None]
  - Rash erythematous [None]
